FAERS Safety Report 9206315 (Version 1)
Quarter: 2013Q2

REPORT INFORMATION
  Report Type: Report from Study
  Country: US (occurrence: US)
  Receive Date: 20130403
  Receipt Date: 20130403
  Transmission Date: 20140414
  Serious: No
  Sender: FDA-Public Use
  Company Number: US-VERTEX PHARMACEUTICALS INC.-2013-004353

PATIENT
  Age: 56 Year
  Sex: Female

DRUGS (6)
  1. VX-950 (TELAPREVIR) [Suspect]
     Indication: HEPATITIS C
     Dosage: 750 MG, TID
     Route: 048
     Dates: start: 20130308
  2. PEGASYS [Suspect]
     Indication: HEPATITIS C
     Dosage: 180 ?G, QW
     Route: 058
     Dates: start: 20130308
  3. RIBASPHERE [Suspect]
     Indication: HEPATITIS C
     Dosage: 600 MG, BID
     Route: 048
     Dates: start: 20130308
  4. AMLODIPINE [Concomitant]
     Dosage: 10 MG, QD
     Route: 048
  5. LOSARTAN [Concomitant]
     Dosage: 100 MG, QD
     Route: 048
  6. ADVAIR [Concomitant]
     Dosage: 1 PUFF AS DIRECTED
     Route: 055

REACTIONS (2)
  - Abdominal distension [Unknown]
  - Insomnia [Unknown]
